FAERS Safety Report 6984536-5 (Version None)
Quarter: 2010Q3

REPORT INFORMATION
  Report Type: 
  Country: None (occurrence: None)
  Receive Date: 20100915
  Receipt Date: 20100906
  Transmission Date: 20110219
  Serious: Yes (Other)
  Sender: FDA-Public Use
  Company Number: US-PFIZER INC-2010084523

PATIENT
  Sex: Male

DRUGS (13)
  1. LIPITOR [Suspect]
     Dosage: 40MG, DAILY
  2. CELEBREX [Suspect]
     Indication: ARTHRITIS
     Dosage: 200 MG, UNK
     Dates: start: 20000101
  3. CELEBREX [Suspect]
     Dosage: 200 MG, 1X/DAY
  4. PLAVIX [Suspect]
     Dosage: UNK
  5. PLAVIX [Suspect]
     Dosage: 75 MG, 1X/DAY
  6. ZETIA [Suspect]
     Dosage: UNK
  7. ZETIA [Suspect]
     Dosage: 10 MG, 1X/DAY
  8. TRICOR [Suspect]
     Dosage: UNK
  9. TRICOR [Suspect]
     Dosage: 145 MG, 1X/DAY
  10. METFORMIN [Concomitant]
     Dosage: 850 MG, 1X/DAY
  11. ACETYLSALICYLIC ACID [Concomitant]
     Dosage: 81 MG, 1X/DAY
  12. FISH OIL [Concomitant]
     Dosage: UNK
  13. AVODART [Concomitant]
     Dosage: 0.5 MG, UNK

REACTIONS (4)
  - CORONARY ARTERY DISEASE [None]
  - MUSCLE SPASMS [None]
  - MUSCULAR WEAKNESS [None]
  - PAIN [None]
